FAERS Safety Report 8922732 (Version 1)
Quarter: 2012Q4

REPORT INFORMATION
  Report Type: Spontaneous
  Country: TR (occurrence: None)
  Receive Date: 20121109
  Receipt Date: 20121109
  Transmission Date: 20130627
  Serious: Yes (Other)
  Sender: FDA-Public Use
  Company Number: 2012S1000569

PATIENT
  Age: 56 Year
  Sex: Male
  Weight: 90 kg

DRUGS (1)
  1. CUBICIN [Suspect]
     Indication: SOFT TISSUE INFECTION
     Route: 042
     Dates: start: 20120608, end: 20120615

REACTIONS (1)
  - Thrombocytosis [None]
